FAERS Safety Report 24227128 (Version 2)
Quarter: 2024Q3

REPORT INFORMATION
  Report Type: Spontaneous
  Country: GB (occurrence: GB)
  Receive Date: 20240820
  Receipt Date: 20240925
  Transmission Date: 20241017
  Serious: Yes (Hospitalization)
  Sender: MYLAN
  Company Number: GB-MYLANLABS-2024M1076486

PATIENT
  Age: 32 Year
  Sex: Female
  Weight: 130 kg

DRUGS (2)
  1. CLOZARIL [Suspect]
     Active Substance: CLOZAPINE
     Indication: Schizophrenia
     Dosage: UNK
     Route: 048
     Dates: start: 20140815
  2. CLOZARIL [Suspect]
     Active Substance: CLOZAPINE
     Dosage: UNK, BID (REGULAR DOSE OF 100MGAM, 225MGPM)
     Route: 065
     Dates: start: 20240908

REACTIONS (4)
  - Hospitalisation [Unknown]
  - Stress [Recovered/Resolved]
  - Treatment noncompliance [Unknown]
  - Therapy interrupted [Recovered/Resolved]

NARRATIVE: CASE EVENT DATE: 20240906
